FAERS Safety Report 10990848 (Version 5)
Quarter: 2015Q3

REPORT INFORMATION
  Report Type: Spontaneous
  Country: US (occurrence: US)
  Receive Date: 20150406
  Receipt Date: 20150722
  Transmission Date: 20151125
  Serious: Yes (Hospitalization, Other)
  Sender: FDA-Public Use
  Company Number: US-PFIZER INC-2015113817

PATIENT
  Age: 70 Year
  Sex: Female
  Weight: 107 kg

DRUGS (30)
  1. OXYBUTYNIN CHLORIDE. [Concomitant]
     Active Substance: OXYBUTYNIN CHLORIDE
     Indication: BLADDER DISORDER
     Dosage: 10 MG, 1X/DAY IN MORNING
  2. HYDROCODONE W/ACETAMINOPHEN [Concomitant]
     Active Substance: ACETAMINOPHEN\HYDROCODONE BITARTRATE
     Indication: BACK PAIN
     Dosage: 5-325MG TWO TABLETS IN THE MORNING
     Dates: start: 19990525
  3. COLACE [Concomitant]
     Active Substance: DOCUSATE SODIUM
     Indication: CONSTIPATION PROPHYLAXIS
     Dosage: 100 MG, 2X/DAY
  4. GAVISCON [Concomitant]
     Active Substance: ALUMINUM HYDROXIDE\MAGNESIUM CARBONATE
     Indication: ABDOMINAL DISCOMFORT
     Dosage: 300 MG, 2X/DAY
     Route: 048
  5. FUROSEMIDE. [Concomitant]
     Active Substance: FUROSEMIDE
     Indication: BLOOD PRESSURE MEASUREMENT
     Dosage: 20 MG, 1X/DAY
     Route: 048
  6. MEGA RED KRILL OIL [Concomitant]
     Dosage: 500 MG, 1X/DAY
     Route: 048
  7. TRIMETHOPRIM. [Concomitant]
     Active Substance: TRIMETHOPRIM
     Indication: BLADDER DISORDER
     Dosage: 50 MG, 1X/DAY AT NIGHT, (AT BEDTIME)
  8. NEXIUM [Concomitant]
     Active Substance: ESOMEPRAZOLE MAGNESIUM
     Indication: HIATUS HERNIA
     Dosage: 40 MG, 1X/DAY IN THE MORNING
     Dates: start: 19920630
  9. LYSINE [Concomitant]
     Active Substance: LYSINE
     Indication: ORAL HERPES
     Dosage: 500 MG, 1X/DAY
     Route: 048
  10. GABAPENTIN. [Suspect]
     Active Substance: GABAPENTIN
     Indication: NEUROPATHY PERIPHERAL
     Dosage: 600 MG, 3X/DAY
     Route: 048
  11. GABAPENTIN. [Suspect]
     Active Substance: GABAPENTIN
     Indication: PAIN
     Dosage: 800 MG, 3X/DAY
     Route: 048
  12. GABAPENTIN. [Suspect]
     Active Substance: GABAPENTIN
     Indication: ABDOMINAL PAIN LOWER
     Dosage: 800 MG, 3X/DAY
     Route: 048
     Dates: start: 20150511
  13. TYLENOL [Concomitant]
     Active Substance: ACETAMINOPHEN
     Indication: PAIN
     Dosage: 1000 MG, AS NEEDED
     Route: 048
  14. NORCO [Concomitant]
     Active Substance: ACETAMINOPHEN\HYDROCODONE BITARTRATE
     Indication: PAIN
     Dosage: 325MG ACETAMINOPHEN/5MG HYDROCODONE, AS NEEDED 4X/DAY
     Route: 048
  15. VALIUM [Concomitant]
     Active Substance: DIAZEPAM
     Indication: ANXIETY
     Dosage: 10 MG, AS NEEDED
     Route: 048
  16. TRIMETHOPRIM. [Concomitant]
     Active Substance: TRIMETHOPRIM
     Dosage: 100 MG, AT BEDTIME ONLY
     Dates: start: 20140912, end: 20150511
  17. CENTRUM SILVER [Concomitant]
     Active Substance: VITAMINS
     Dosage: 1 DF, 1X/DAY
     Route: 048
  18. LYRICA [Concomitant]
     Active Substance: PREGABALIN
  19. OXYBUTYNIN CHLORIDE. [Concomitant]
     Active Substance: OXYBUTYNIN CHLORIDE
     Dosage: 800 MG, UNK
     Dates: start: 2015
  20. POTASSIUM CHLORIDE. [Concomitant]
     Active Substance: POTASSIUM CHLORIDE
     Indication: LIVER DISORDER
     Dosage: 20 MG, 2X/DAY
     Route: 048
     Dates: start: 20140314
  21. LISINOPRIL. [Concomitant]
     Active Substance: LISINOPRIL
     Indication: HYPERTENSION
     Dosage: 20 MG, 1X/DAY IN THE MORNING
     Route: 048
     Dates: start: 2010
  22. METOPROLOL TARTRATE. [Concomitant]
     Active Substance: METOPROLOL TARTRATE
     Indication: HYPERTENSION
     Dosage: 50 MG, 2X/DAY
     Route: 048
     Dates: start: 2010
  23. VITAMIN C [Concomitant]
     Active Substance: ASCORBIC ACID
     Indication: IMMUNE SYSTEM DISORDER
     Dosage: 1000 MG, 1X/DAY
     Route: 048
  24. VITAMIN E [Concomitant]
     Active Substance: .ALPHA.-TOCOPHEROL
     Dosage: 1000 MG, 1X/DAY
     Route: 048
  25. HYDROCODONE [Concomitant]
     Active Substance: HYDROCODONE
     Indication: BACK PAIN
     Dosage: 325 MG, 1X/DAY
  26. TORSEMIDE. [Concomitant]
     Active Substance: TORSEMIDE
     Indication: DIURETIC THERAPY
     Dosage: 5 MG, 1X/DAY
     Route: 048
  27. CITRACAL+D [Concomitant]
     Indication: BONE DISORDER
     Dosage: 1 DF, 1X/DAY
     Route: 048
  28. SENOKOT-S [Concomitant]
     Active Substance: DOCUSATE SODIUM\SENNOSIDES
     Indication: LAXATIVE SUPPORTIVE CARE
     Dosage: 50 MG/8.6 MG, 2X/DAY
     Route: 048
  29. FLUTICASONE [Concomitant]
     Active Substance: FLUTICASONE\FLUTICASONE PROPIONATE
     Indication: NASAL CONGESTION
     Dosage: 0.05 MG, UNK
     Route: 045
     Dates: end: 20150430
  30. TURMERIC + BROMELAIN [Concomitant]
     Indication: LIVER DISORDER
     Dosage: 500 MG, UNK

REACTIONS (11)
  - Neuroma [Unknown]
  - Peripheral swelling [Not Recovered/Not Resolved]
  - Intervertebral disc injury [Not Recovered/Not Resolved]
  - Abdominal pain lower [Not Recovered/Not Resolved]
  - Nephrolithiasis [Unknown]
  - Back pain [Unknown]
  - Disease progression [Not Recovered/Not Resolved]
  - Oropharyngeal pain [Recovered/Resolved]
  - Drug ineffective for unapproved indication [Not Recovered/Not Resolved]
  - Renal disorder [Unknown]
  - Foot deformity [Unknown]

NARRATIVE: CASE EVENT DATE: 201311
